FAERS Safety Report 17133368 (Version 14)
Quarter: 2021Q3

REPORT INFORMATION
  Report Type: Report from Study
  Country: JP (occurrence: JP)
  Receive Date: 20191210
  Receipt Date: 20210811
  Transmission Date: 20211014
  Serious: Yes (Hospitalization, Other)
  Sender: FDA-Public Use
  Company Number: JP-BRISTOL-MYERS SQUIBB COMPANY-BMS-2019-118263

PATIENT
  Age: 60 Year
  Sex: Female
  Weight: 52.5 kg

DRUGS (32)
  1. TRAMETINIB DIMETHYL SULFOXIDE [Suspect]
     Active Substance: TRAMETINIB DIMETHYL SULFOXIDE
     Dosage: CUMULATIVE DOSE: 44 MG
     Route: 065
     Dates: start: 20191105
  2. MEKTOVI [Suspect]
     Active Substance: BINIMETINIB
     Indication: MALIGNANT MELANOMA
     Dosage: 90 MILLIGRAM, EVERYDAY
     Route: 048
     Dates: start: 20191127, end: 20191207
  3. PREDNISOLONE. [Suspect]
     Active Substance: PREDNISOLONE
     Dosage: 7.5 MILLIGRAM PER DAY
     Route: 048
     Dates: start: 20200120, end: 202001
  4. ALFACALCIDOL [Concomitant]
     Active Substance: ALFACALCIDOL
     Indication: OSTEOPOROSIS PROPHYLAXIS
     Dosage: UNK
     Route: 048
  5. NIVOLUMAB [Suspect]
     Active Substance: NIVOLUMAB
     Indication: MALIGNANT MELANOMA
     Dosage: 240 MILLIGRAM, Q2WK
     Route: 041
     Dates: start: 20190618, end: 20190813
  6. TRAMETINIB DIMETHYL SULFOXIDE [Suspect]
     Active Substance: TRAMETINIB DIMETHYL SULFOXIDE
     Indication: MALIGNANT MELANOMA
     Dosage: 2 MG, EVERYDAY
     Route: 065
     Dates: start: 20190820, end: 20190910
  7. BRAFTOVI [Suspect]
     Active Substance: ENCORAFENIB
     Dosage: 300 MILLIGRAM EVERYDAY
     Route: 048
     Dates: start: 20200107, end: 20200122
  8. BRAFTOVI [Suspect]
     Active Substance: ENCORAFENIB
     Dosage: 300 MILLIGRAM, EVERYDAY
     Route: 048
     Dates: start: 20200205, end: 20200330
  9. BRAFTOVI [Suspect]
     Active Substance: ENCORAFENIB
     Dosage: 450 MILLIGRAM, EVERYDAY
     Route: 048
     Dates: start: 20200331, end: 20200428
  10. BRAFTOVI [Suspect]
     Active Substance: ENCORAFENIB
     Indication: MALIGNANT MELANOMA
     Dosage: 450 MILLIGRAM, EVERYDAY
     Route: 048
     Dates: start: 20191127, end: 20191207
  11. PREDNISOLONE. [Suspect]
     Active Substance: PREDNISOLONE
     Indication: BLOOD LACTATE DEHYDROGENASE INCREASED
     Dosage: 10 MILLIGRAM/DAY
     Route: 048
     Dates: start: 20200107, end: 20200119
  12. PREDNISOLONE. [Suspect]
     Active Substance: PREDNISOLONE
     Dosage: 5 MILLIGRAM PER DAY
     Route: 048
     Dates: start: 202001
  13. BASEN [VOGLIBOSE] [Suspect]
     Active Substance: VOGLIBOSE
     Indication: STEROID DIABETES
     Dosage: UNK
     Route: 048
  14. MEKTOVI [Suspect]
     Active Substance: BINIMETINIB
     Dosage: 30 MILLIGRAM, Q12H
     Route: 048
     Dates: start: 20200107, end: 20200122
  15. MEKTOVI [Suspect]
     Active Substance: BINIMETINIB
     Dosage: 30 MILLIGRAM, Q12H
     Route: 048
     Dates: start: 20200511, end: 20201126
  16. PREDNISOLONE. [Suspect]
     Active Substance: PREDNISOLONE
     Indication: DIARRHOEA
     Dosage: 25 MILLIGRAM PER DAY
     Route: 048
     Dates: start: 20190910, end: 20190916
  17. LIXIANA [Concomitant]
     Active Substance: EDOXABAN TOSYLATE
     Indication: PROPHYLAXIS
     Dosage: UNK
     Route: 048
  18. DABRAFENIB MESILATE [Suspect]
     Active Substance: DABRAFENIB MESYLATE
     Dosage: CUMULATIVE DOSE : 6600 MILLIGRAMS
     Route: 065
     Dates: start: 20191105
  19. BRAFTOVI [Suspect]
     Active Substance: ENCORAFENIB
     Dosage: 300 MILLIGRAM, EVERYDAY
     Route: 048
     Dates: start: 20200511, end: 20201126
  20. MEKTOVI [Suspect]
     Active Substance: BINIMETINIB
     Dosage: 45 MILLIGRAM, Q12H
     Route: 048
     Dates: start: 20200331, end: 20200502
  21. MEKTOVI [Suspect]
     Active Substance: BINIMETINIB
     Dosage: 30 MILLIGRAM, Q12H
     Route: 048
     Dates: start: 20200503, end: 20200507
  22. PREDNISOLONE. [Suspect]
     Active Substance: PREDNISOLONE
     Indication: PYREXIA
     Dosage: 20 MILLIGRAM PER DAY
     Route: 048
     Dates: start: 20190917, end: 20191216
  23. FAMOTIDINE. [Concomitant]
     Active Substance: FAMOTIDINE
     Indication: GASTRITIS PROPHYLAXIS
     Dosage: UNK
     Route: 048
  24. BAKTAR [Concomitant]
     Active Substance: SULFAMETHOXAZOLE\TRIMETHOPRIM
     Indication: INFECTION PROPHYLAXIS
     Dosage: UNK
     Route: 048
  25. DABRAFENIB MESILATE [Suspect]
     Active Substance: DABRAFENIB MESYLATE
     Dosage: 200 MG, EVERYDAY
     Route: 065
     Dates: start: 20190917, end: 2019
  26. MEKTOVI [Suspect]
     Active Substance: BINIMETINIB
     Dosage: 30 MILLIGRAM, Q12H
     Route: 048
     Dates: start: 20200205, end: 20200330
  27. PREDNISOLONE. [Suspect]
     Active Substance: PREDNISOLONE
     Indication: RASH
     Dosage: 15 MILLIGRAM PER DAY
     Route: 048
     Dates: start: 20191217, end: 20200106
  28. TRAMETINIB DIMETHYL SULFOXIDE [Suspect]
     Active Substance: TRAMETINIB DIMETHYL SULFOXIDE
     Dosage: 1.5 MG, EVERYDAY
     Route: 065
     Dates: start: 20190917, end: 2019
  29. BRAFTOVI [Suspect]
     Active Substance: ENCORAFENIB
     Dosage: 300 MILLIGRAM, EVERYDAY
     Route: 048
     Dates: start: 20200503, end: 20200507
  30. LEVOTHYROXINE NA [Concomitant]
     Active Substance: LEVOTHYROXINE SODIUM
     Indication: THYROIDITIS
     Dosage: UNK
     Route: 048
  31. DABRAFENIB MESILATE [Suspect]
     Active Substance: DABRAFENIB MESYLATE
     Indication: MALIGNANT MELANOMA
     Dosage: 300 MG, EVERYDAY
     Route: 065
     Dates: start: 20190820, end: 20190910
  32. JANUVIA [Concomitant]
     Active Substance: SITAGLIPTIN PHOSPHATE
     Indication: STEROID DIABETES
     Dosage: UNK
     Route: 048

REACTIONS (12)
  - Diarrhoea [Recovered/Resolved]
  - Macular detachment [Recovering/Resolving]
  - Blood lactate dehydrogenase increased [Unknown]
  - Large intestine perforation [Unknown]
  - Pyrexia [Recovering/Resolving]
  - Rash [Recovered/Resolved]
  - Flatulence [Recovered/Resolved]
  - Rhabdomyolysis [Recovered/Resolved]
  - Leukoderma [Not Recovered/Not Resolved]
  - Malignant neoplasm progression [Unknown]
  - Hepatic function abnormal [Recovered/Resolved]
  - Thyroid disorder [Unknown]

NARRATIVE: CASE EVENT DATE: 20190730
